FAERS Safety Report 15211608 (Version 1)
Quarter: 2018Q3

REPORT INFORMATION
  Report Type: Spontaneous
  Country: US (occurrence: US)
  Receive Date: 20180702
  Receipt Date: 20180702
  Transmission Date: 20181010
  Serious: Yes (Disabling)
  Sender: FDA-Public Use
  Company Number: None

PATIENT
  Age: 45 Year
  Sex: Female
  Weight: 76.5 kg

DRUGS (7)
  1. COQ10 [Concomitant]
     Active Substance: UBIDECARENONE
  2. CINNAMON. [Concomitant]
     Active Substance: CINNAMON
  3. KYOLIC GARLIC [Concomitant]
     Active Substance: DIETARY SUPPLEMENT
  4. WELCHOL [Suspect]
     Active Substance: COLESEVELAM HYDROCHLORIDE
     Indication: TYPE IIA HYPERLIPIDAEMIA
     Dosage: ?          QUANTITY:180 TABLET(S);?
     Route: 048
     Dates: start: 20180413, end: 20180609
  5. SYNTHROID [Concomitant]
     Active Substance: LEVOTHYROXINE SODIUM
  6. RABEPRAZOLE [Concomitant]
     Active Substance: RABEPRAZOLE
  7. MULTIVITAMIN [Concomitant]
     Active Substance: VITAMINS

REACTIONS (6)
  - Fatigue [None]
  - Gastrooesophageal reflux disease [None]
  - Anxiety [None]
  - Arthralgia [None]
  - Myalgia [None]
  - Hiatus hernia [None]

NARRATIVE: CASE EVENT DATE: 20180702
